FAERS Safety Report 15015002 (Version 2)
Quarter: 2019Q2

REPORT INFORMATION
  Report Type: Spontaneous
  Country: US (occurrence: US)
  Receive Date: 20180615
  Receipt Date: 20190413
  Transmission Date: 20190711
  Serious: Yes (Other)
  Sender: FDA-Public Use
  Company Number: PHEH2018US023617

PATIENT
  Sex: Female

DRUGS (1)
  1. VOTRIENT [Suspect]
     Active Substance: PAZOPANIB HYDROCHLORIDE
     Indication: ENDOMETRIAL CANCER
     Dosage: 800 MG, QD
     Route: 048
     Dates: start: 20180106

REACTIONS (3)
  - Neuropathy peripheral [Unknown]
  - Feeling abnormal [Unknown]
  - Diarrhoea [Unknown]
